FAERS Safety Report 13326898 (Version 1)
Quarter: 2017Q1

REPORT INFORMATION
  Report Type: Report from Study
  Country: CA (occurrence: CA)
  Receive Date: 20170312
  Receipt Date: 20170312
  Transmission Date: 20170428
  Serious: Yes (Death, Hospitalization)
  Sender: FDA-Public Use
  Company Number: PHHY2016CA175435

PATIENT
  Age: 38 Year
  Sex: Male

DRUGS (2)
  1. TAFINLAR [Suspect]
     Active Substance: DABRAFENIB MESYLATE
     Indication: METASTATIC MALIGNANT MELANOMA
     Dosage: 300 MG, QD
     Route: 048
     Dates: start: 20161209
  2. MEKINIST [Suspect]
     Active Substance: TRAMETINIB DIMETHYL SULFOXIDE
     Indication: METASTATIC MALIGNANT MELANOMA
     Dosage: 2 MG, QD
     Route: 048
     Dates: start: 20161209

REACTIONS (5)
  - Pyrexia [Unknown]
  - Epistaxis [Recovered/Resolved]
  - Fatigue [Unknown]
  - Death [Fatal]
  - Peripheral swelling [Unknown]

NARRATIVE: CASE EVENT DATE: 20170228
